FAERS Safety Report 8119289-0 (Version None)
Quarter: 2012Q1

REPORT INFORMATION
  Report Type: 
  Country: None (occurrence: None)
  Receive Date: 20120207
  Receipt Date: 20120126
  Transmission Date: 20120608
  Serious: Yes (Hospitalization)
  Sender: FDA-Public Use
  Company Number: US-ELI_LILLY_AND_COMPANY-US201201009255

PATIENT
  Age: 67 Year
  Sex: Male

DRUGS (20)
  1. MOBIC [Concomitant]
     Dosage: 15 MG, QD
  2. METOPROLOL [Concomitant]
     Dosage: 25 MG, QD
  3. TEGRETOL [Concomitant]
     Dosage: 400 MG, EACH EVENING
  4. SIMVASTATIN [Concomitant]
     Dosage: 40 MG, QD
  5. HYDROCHLOROTHIAZIDE [Concomitant]
     Dosage: 25 MG, QD
  6. NORVASC [Concomitant]
     Dosage: 5 MG, QD
  7. LANTUS [Concomitant]
     Dosage: UNK, EACH EVENING
  8. CYMBALTA [Suspect]
     Indication: BIPOLAR DISORDER
     Dosage: 60 MG, QD
     Dates: start: 20090101
  9. METFORMIN HCL [Concomitant]
     Dosage: 1000 MG, BID
  10. HYDRALAZINE HCL [Concomitant]
     Dosage: 50 MG, BID
  11. ASPIRIN [Concomitant]
     Dosage: 81 MG, QD
  12. NOVOLOG [Concomitant]
  13. DITROPAN                                /USA/ [Concomitant]
     Dosage: 5 MG, BID
  14. COZAAR [Concomitant]
     Dosage: 100 MG, QD
  15. TEGRETOL [Concomitant]
     Dosage: 200 MG, EACH MORNING
  16. WELLBUTRIN [Concomitant]
     Dosage: 150 MG, QD
  17. NYSTATIN [Concomitant]
     Dosage: 500000 U, TID
  18. ABILIFY [Concomitant]
     Dosage: 10 MG, QD
  19. OMEPRAZOLE [Concomitant]
     Dosage: 20 MG, QD
  20. LEVOTHYROXINE SODIUM [Concomitant]
     Dosage: 0.075 MG, QD

REACTIONS (4)
  - DELIRIUM [None]
  - OFF LABEL USE [None]
  - CONFUSIONAL STATE [None]
  - CORONARY ARTERY DISEASE [None]
